FAERS Safety Report 11053756 (Version 2)
Quarter: 2015Q2

REPORT INFORMATION
  Report Type: Spontaneous
  Country: US (occurrence: US)
  Receive Date: 20150421
  Receipt Date: 20150602
  Transmission Date: 20150821
  Serious: Yes (Hospitalization)
  Sender: FDA-Public Use
  Company Number: US-ELI_LILLY_AND_COMPANY-US201504005767

PATIENT
  Age: 70 Year
  Sex: Female
  Weight: 108 kg

DRUGS (3)
  1. GLIPIZIDE. [Concomitant]
     Active Substance: GLIPIZIDE
     Dosage: 5 MG, UNKNOWN
     Route: 065
     Dates: start: 20150305
  2. TRULICITY [Suspect]
     Active Substance: DULAGLUTIDE
     Indication: TYPE 2 DIABETES MELLITUS
     Dosage: 0.75 MG, WEEKLY (1/W)
     Route: 065
     Dates: start: 20150303
  3. NORCO [Concomitant]
     Active Substance: ACETAMINOPHEN\HYDROCODONE BITARTRATE
     Dosage: UNK

REACTIONS (4)
  - Nausea [Recovered/Resolved]
  - Hypoglycaemia [Recovered/Resolved]
  - Hypophagia [Recovered/Resolved]
  - Gastrointestinal viral infection [Unknown]

NARRATIVE: CASE EVENT DATE: 20150306
